FAERS Safety Report 7690764-6 (Version None)
Quarter: 2011Q3

REPORT INFORMATION
  Report Type: 
  Country: None (occurrence: None)
  Receive Date: 20110818
  Receipt Date: 20110810
  Transmission Date: 20111222
  Serious: Yes (Other)
  Sender: FDA-Public Use
  Company Number: FR-SANOFI-AVENTIS-2011SA051099

PATIENT
  Age: 55 Year
  Sex: Male

DRUGS (5)
  1. EPOETIN BETA [Concomitant]
     Route: 065
  2. CEFUROXIME [Suspect]
     Indication: SUPERINFECTION
     Dosage: DOSE:2 UNIT(S)
     Route: 048
     Dates: start: 20110316, end: 20110321
  3. PRAXILENE [Concomitant]
     Indication: ARTERITIS OBLITERANS
     Route: 048
  4. TAXOTERE [Suspect]
     Indication: BRONCHIAL CARCINOMA
     Route: 042
     Dates: start: 20110121, end: 20110601
  5. ASPIRIN [Concomitant]
     Indication: THROMBOSIS PROPHYLAXIS
     Route: 048

REACTIONS (2)
  - TUBULOINTERSTITIAL NEPHRITIS [None]
  - GRANULOMA [None]
